FAERS Safety Report 18442975 (Version 1)
Quarter: 2020Q4

REPORT INFORMATION
  Report Type: Report from Study
  Country: None (occurrence: US)
  Receive Date: 20201030
  Receipt Date: 20201030
  Transmission Date: 20210114
  Serious: Yes (Other)
  Sender: FDA-Public Use
  Company Number: US-ABBVIE-20K-163-3380624-00

PATIENT
  Sex: Male

DRUGS (3)
  1. HUMIRA [Suspect]
     Active Substance: ADALIMUMAB
     Route: 058
     Dates: start: 2020
  2. HUMIRA [Suspect]
     Active Substance: ADALIMUMAB
     Route: 058
     Dates: start: 20200422, end: 2020
  3. HUMIRA [Suspect]
     Active Substance: ADALIMUMAB
     Indication: COLITIS ULCERATIVE
     Route: 058
     Dates: start: 2019, end: 202002

REACTIONS (12)
  - Constipation [Unknown]
  - Decreased appetite [Not Recovered/Not Resolved]
  - Gastrointestinal ulcer haemorrhage [Unknown]
  - Weight decreased [Unknown]
  - Intentional product misuse [Unknown]
  - Faeces soft [Unknown]
  - Lactose intolerance [Not Recovered/Not Resolved]
  - Haematochezia [Recovering/Resolving]
  - Rectal haemorrhage [Recovering/Resolving]
  - Hypermetabolism [Unknown]
  - Diarrhoea [Recovered/Resolved]
  - Weight abnormal [Unknown]

NARRATIVE: CASE EVENT DATE: 2020
